FAERS Safety Report 18541945 (Version 1)
Quarter: 2020Q4

REPORT INFORMATION
  Report Type: Spontaneous
  Country: US (occurrence: US)
  Receive Date: 20201125
  Receipt Date: 20201125
  Transmission Date: 20210114
  Serious: No
  Sender: FDA-Public Use
  Company Number: US-ACCORD-203761

PATIENT
  Sex: Male
  Weight: 72.57 kg

DRUGS (1)
  1. BUPROPION. [Suspect]
     Active Substance: BUPROPION
     Indication: DEPRESSION
     Dosage: DISPENSED IN A PHARMACY BOTTLE
     Route: 048
     Dates: start: 202009

REACTIONS (6)
  - Nervousness [Unknown]
  - Panic attack [Unknown]
  - Nausea [Unknown]
  - Product odour abnormal [Unknown]
  - Discomfort [Unknown]
  - Confusional state [Unknown]
